FAERS Safety Report 10419714 (Version 2)
Quarter: 2014Q4

REPORT INFORMATION
  Report Type: Report from Study
  Country: AU (occurrence: AU)
  Receive Date: 20140829
  Receipt Date: 20141104
  Transmission Date: 20150528
  Serious: Yes (Hospitalization)
  Sender: FDA-Public Use
  Company Number: AU-BRISTOL-MYERS SQUIBB COMPANY-21328596

PATIENT
  Age: 54 Year
  Sex: Female

DRUGS (9)
  1. DIABEX [Concomitant]
     Active Substance: METFORMIN HYDROCHLORIDE
  2. NOVORAPID [Concomitant]
     Active Substance: INSULIN ASPART
  3. PANADOL [Concomitant]
     Active Substance: ACETAMINOPHEN
  4. SPRYCEL [Suspect]
     Active Substance: DASATINIB
     Indication: CHRONIC MYELOID LEUKAEMIA
     Route: 048
     Dates: start: 20070601
  5. PANADEINE [Concomitant]
     Active Substance: ACETAMINOPHEN\CODEINE PHOSPHATE
  6. BETALOC [Concomitant]
     Active Substance: METOPROLOL TARTRATE
  7. LANTUS [Concomitant]
     Active Substance: INSULIN GLARGINE
  8. MICARDIS PLUS [Concomitant]
     Active Substance: HYDROCHLOROTHIAZIDE\TELMISARTAN
  9. LYRICA [Concomitant]
     Active Substance: PREGABALIN

REACTIONS (1)
  - Pancreatitis [Unknown]

NARRATIVE: CASE EVENT DATE: 20131101
